FAERS Safety Report 5718695-9 (Version None)
Quarter: 2008Q2

REPORT INFORMATION
  Report Type: 
  Country: None (occurrence: None)
  Receive Date: 20080423
  Receipt Date: 20080409
  Transmission Date: 20081010
  Serious: Yes (Other)
  Sender: FDA-Public Use
  Company Number: 008-20785-08041237

PATIENT
  Age: 49 Year
  Sex: Female

DRUGS (4)
  1. THALIDOMIDE [Suspect]
     Indication: AMYLOIDOSIS
     Dosage: 100 MG, DAILY, ORAL; 50 MG, 1 IN 1 D, ORAL
     Route: 048
     Dates: start: 20060201, end: 20060501
  2. THALIDOMIDE [Suspect]
     Indication: AMYLOIDOSIS
     Dosage: 100 MG, DAILY, ORAL; 50 MG, 1 IN 1 D, ORAL
     Route: 048
     Dates: start: 20060501, end: 20070101
  3. DEXAMETHASONE TAB [Suspect]
     Indication: AMYLOIDOSIS
     Dosage: 20 MG, FOR 4 DAYS EACH TWO WEEKS,
     Dates: start: 20060201, end: 20060501
  4. CYCLOPHOSPHAMIDE [Suspect]
     Indication: AMYLOIDOSIS
     Dosage: 400 - 500 MG, WEEKLY, ORAL
     Route: 048
     Dates: start: 20060201, end: 20060701

REACTIONS (6)
  - ANTITHROMBIN III DEFICIENCY [None]
  - BLOOD ALBUMIN ABNORMAL [None]
  - HEPATITIS B [None]
  - HERPES ZOSTER MULTI-DERMATOMAL [None]
  - INTERNATIONAL NORMALISED RATIO INCREASED [None]
  - PROTEINURIA [None]
